FAERS Safety Report 7085117-8 (Version None)
Quarter: 2010Q4

REPORT INFORMATION
  Report Type: 
  Country: None (occurrence: None)
  Receive Date: 20101027
  Receipt Date: 20101020
  Transmission Date: 20110411
  Serious: Yes (Other)
  Sender: FDA-Public Use
  Company Number: 2010SP054807

PATIENT
  Age: 73 Year
  Sex: Male
  Weight: 60 kg

DRUGS (2)
  1. ORMIGREIN (ORMIGREIN 01755201/) [Suspect]
     Indication: MIGRAINE
     Dosage: PO
     Route: 048
     Dates: start: 19800101, end: 20100101
  2. DORFLEX [Concomitant]

REACTIONS (1)
  - OVERDOSE [None]
